FAERS Safety Report 5705695-8 (Version None)
Quarter: 2008Q2

REPORT INFORMATION
  Report Type: 
  Country: None (occurrence: None)
  Receive Date: 20080411
  Receipt Date: 20080328
  Transmission Date: 20081010
  Serious: Yes (Hospitalization)
  Sender: FDA-Public Use
  Company Number: 2008S1004126

PATIENT
  Age: 38 Year
  Sex: Male
  Weight: 1156.6724 kg

DRUGS (10)
  1. CYCLOBENZAPRINE HCL [Suspect]
     Indication: MUSCLE SPASMS
     Dosage: 5 MG; AS NEEDED; ORAL, ORAL
     Route: 048
     Dates: start: 20080228, end: 20080228
  2. CYCLOBENZAPRINE HCL [Suspect]
     Indication: MUSCLE SPASMS
     Dosage: 5 MG; AS NEEDED; ORAL, ORAL
     Route: 048
     Dates: start: 20080229, end: 20080229
  3. CYMBALTA [Concomitant]
  4. SEROQUEL [Concomitant]
  5. AMBIEN [Concomitant]
  6. REQUIP [Concomitant]
  7. FLOMAX [Concomitant]
  8. PROTONIX [Concomitant]
  9. AVAPRO [Concomitant]
  10. IBUPROFEN [Concomitant]

REACTIONS (14)
  - AGGRESSION [None]
  - ALANINE AMINOTRANSFERASE INCREASED [None]
  - ALCOHOL ABUSE [None]
  - ALCOHOL INTERACTION [None]
  - AMNESIA [None]
  - ASPARTATE AMINOTRANSFERASE INCREASED [None]
  - BELLIGERENCE [None]
  - CONFUSIONAL STATE [None]
  - DELIRIUM [None]
  - DEPRESSION [None]
  - EMOTIONAL DISTRESS [None]
  - LOSS OF EMPLOYMENT [None]
  - OVERDOSE [None]
  - SUICIDE ATTEMPT [None]
